FAERS Safety Report 21346436 (Version 3)
Quarter: 2022Q4

REPORT INFORMATION
  Report Type: Spontaneous
  Country: PT (occurrence: PT)
  Receive Date: 20220917
  Receipt Date: 20221121
  Transmission Date: 20230112
  Serious: Yes (Hospitalization)
  Sender: FDA-Public Use
  Company Number: PT-Accord-277806

PATIENT
  Age: 25 Year
  Sex: Female

DRUGS (3)
  1. CLOZAPINE [Suspect]
     Active Substance: CLOZAPINE
     Indication: Schizophrenia
     Dosage: 300 MG/D, REDUCED TO ORAL 150 MG
     Route: 048
  2. PALIPERIDONE PALMITATE [Concomitant]
     Active Substance: PALIPERIDONE PALMITATE
     Indication: Schizophrenia
     Dosage: LONG-ACTING INJECTABLE, LAI 150 MG/MONTH
  3. CLOZAPINE [Suspect]
     Active Substance: CLOZAPINE
     Indication: Schizophrenia
     Route: 048

REACTIONS (5)
  - Periorbital oedema [Recovered/Resolved]
  - Salivary hypersecretion [Recovering/Resolving]
  - Red blood cell sedimentation rate increased [Unknown]
  - Basophilia [Unknown]
  - Monocytosis [Unknown]
